FAERS Safety Report 6762429-6 (Version None)
Quarter: 2010Q2

REPORT INFORMATION
  Report Type: 
  Country: None (occurrence: None)
  Receive Date: 20100609
  Receipt Date: 20100527
  Transmission Date: 20101027
  Serious: Yes (Hospitalization)
  Sender: FDA-Public Use
  Company Number: US-ROCHE-707977

PATIENT
  Age: 84 Year
  Sex: Male
  Weight: 69 kg

DRUGS (25)
  1. NAPROXEN [Suspect]
     Indication: OSTEOARTHRITIS
     Route: 065
     Dates: start: 20070316
  2. CARVEDILOL [Suspect]
     Indication: DRUG USE FOR UNKNOWN INDICATION
     Dosage: DRUG RPTD: CARVEDILOL CR
     Route: 065
     Dates: start: 20080606, end: 20080926
  3. CELECOXIB [Suspect]
     Indication: OSTEOARTHRITIS
     Route: 048
     Dates: start: 20070316
  4. MOTRIN [Suspect]
     Indication: OSTEOARTHRITIS
     Route: 065
     Dates: start: 20070316
  5. ASPIRIN [Concomitant]
     Dates: start: 20050101
  6. BENICAR [Concomitant]
     Dates: start: 20080711
  7. ESOMEPRAZOLE [Concomitant]
     Dates: start: 20070316
  8. INOSITOL [Concomitant]
     Dates: start: 20070227
  9. NIACIN [Concomitant]
     Dates: start: 20070227
  10. EZETIMIBE [Concomitant]
     Dates: start: 20040101
  11. SIMVASTATIN [Concomitant]
     Dates: start: 20040101
  12. DIPHENHYDRAMINE HYDROCHLORIDE [Concomitant]
     Dates: start: 20060101
  13. OMEGA [Concomitant]
     Dates: start: 20050101
  14. ERGOCALCIFEROL [Concomitant]
     Dates: start: 20050101
  15. ASCORBIC ACID [Concomitant]
     Dates: start: 20050101
  16. FOLIC ACID [Concomitant]
     Dates: start: 20050101
  17. THIAMINE HYDROCHLORIDE [Concomitant]
     Dates: start: 20050101
  18. RETINOL [Concomitant]
     Dates: start: 20050101
  19. RIBOFLAVIN TAB [Concomitant]
     Dates: start: 20050101
  20. NICOTINAMIDE [Concomitant]
     Dates: start: 20050101
  21. PANTHENOL [Concomitant]
     Dates: start: 20050101
  22. CHONDROITIN [Concomitant]
     Dates: start: 20040101
  23. GLUCOSAMINE [Concomitant]
     Dates: start: 20040101
  24. HYDROCHLOROTHIAZIDE [Concomitant]
     Route: 048
     Dates: start: 20080711
  25. CETIRIZINE HCL [Concomitant]
     Dates: start: 20080711

REACTIONS (1)
  - BRADYCARDIA [None]
